FAERS Safety Report 5817341-3 (Version None)
Quarter: 2008Q3

REPORT INFORMATION
  Report Type: 
  Country: None (occurrence: None)
  Receive Date: 20080715
  Receipt Date: 20080703
  Transmission Date: 20090109
  Serious: Yes (Congenital Anomaly, Other)
  Sender: FDA-Public Use
  Company Number: GXKR2008GB06266

PATIENT
  Sex: 0

DRUGS (4)
  1. BISOPROLOL (NGX) (BISOPROLOL) [Suspect]
     Indication: HYPERTENSION
     Dosage: TRANSPLACENTAL
     Route: 064
  2. WARFARIN SODIUM [Suspect]
     Indication: ANTICOAGULANT THERAPY
     Dosage: TRANSPLACENTAL
     Route: 064
  3. ATENOLOL [Concomitant]
  4. DALTEPARIN SODIUM [Concomitant]

REACTIONS (3)
  - CAESAREAN SECTION [None]
  - DANDY-WALKER SYNDROME [None]
  - MATERNAL DRUGS AFFECTING FOETUS [None]
